FAERS Safety Report 7298990-5 (Version None)
Quarter: 2011Q1

REPORT INFORMATION
  Report Type: 
  Country: None (occurrence: None)
  Receive Date: 20110217
  Receipt Date: 20110208
  Transmission Date: 20110831
  Serious: Yes (Other)
  Sender: FDA-Public Use
  Company Number: JP-B.I. PHARMACEUTICALS,INC./RIDGEFIELD-2011-BP-02408NB

PATIENT
  Age: 49 Year
  Sex: Male
  Weight: 90.8 kg

DRUGS (1)
  1. MICARDIS [Suspect]
     Indication: HYPERTENSION
     Dosage: 40 MG
     Route: 048
     Dates: start: 20110201, end: 20110203

REACTIONS (2)
  - DIZZINESS [None]
  - ROAD TRAFFIC ACCIDENT [None]
